FAERS Safety Report 7057164-3 (Version None)
Quarter: 2010Q4

REPORT INFORMATION
  Report Type: 
  Country: None (occurrence: None)
  Receive Date: 20101022
  Receipt Date: 20101012
  Transmission Date: 20110411
  Serious: Yes (Other)
  Sender: FDA-Public Use
  Company Number: TR-JNJFOC-20101005063

PATIENT
  Sex: Female

DRUGS (2)
  1. LEVOFLOXACIN [Suspect]
     Indication: PRODUCT USED FOR UNKNOWN INDICATION
     Dosage: ORAL CHALLENGE TEST
     Route: 048
  2. MOXIFLOXACIN [Suspect]
     Indication: PRODUCT USED FOR UNKNOWN INDICATION
     Dosage: ORAL CHALLENGE TEST
     Route: 048

REACTIONS (4)
  - CHEST DISCOMFORT [None]
  - DYSPHONIA [None]
  - PRURIGO [None]
  - TYPE I HYPERSENSITIVITY [None]
